FAERS Safety Report 10263064 (Version 2)
Quarter: 2014Q2

REPORT INFORMATION
  Report Type: Report from Study
  Country: US (occurrence: US)
  Receive Date: 20140626
  Receipt Date: 20140626
  Transmission Date: 20141212
  Serious: Yes (Death)
  Sender: FDA-Public Use
  Company Number: US-MYLANLABS-2014S1000205

PATIENT
  Sex: Female

DRUGS (11)
  1. CLOZAPINE TABLETS [Suspect]
     Indication: PSYCHOTIC DISORDER
     Route: 048
     Dates: start: 20110302, end: 2013
  2. LORAZEPAM [Concomitant]
  3. MORPHINE [Concomitant]
  4. IRON [Concomitant]
  5. REMERON [Concomitant]
  6. PREVACID [Concomitant]
  7. VITAMIN B-12 [Concomitant]
  8. CLONIDINE [Concomitant]
     Route: 062
  9. ZOLOFT [Concomitant]
  10. SINEMET [Concomitant]
     Dosage: 25/100MG
  11. LEVOTHYROXINE [Concomitant]

REACTIONS (1)
  - Death [Fatal]
